FAERS Safety Report 5702680-7 (Version None)
Quarter: 2008Q2

REPORT INFORMATION
  Report Type: 
  Country: None (occurrence: None)
  Receive Date: 20080411
  Receipt Date: 20080317
  Transmission Date: 20081010
  Serious: Yes (Life-Threatening, Hospitalization)
  Sender: FDA-Public Use
  Company Number: CH-ROCHE-556606

PATIENT
  Sex: Male

DRUGS (1)
  1. PROXEN [Suspect]
     Indication: DRUG USE FOR UNKNOWN INDICATION
     Dosage: REPORTED AS ONE DOSE OF 9.5 GRAMS
     Route: 048
     Dates: start: 20080305, end: 20080305

REACTIONS (2)
  - OVERDOSE [None]
  - SINUS ARREST [None]
